FAERS Safety Report 6259223-1 (Version None)
Quarter: 2009Q3

REPORT INFORMATION
  Report Type: 
  Country: None (occurrence: None)
  Receive Date: 20090707
  Receipt Date: 20090630
  Transmission Date: 20100115
  Serious: Yes (Death, Hospitalization)
  Sender: FDA-Public Use
  Company Number: JP-AVENTIS-200911619JP

PATIENT
  Age: 72 Year
  Sex: Female
  Weight: 38 kg

DRUGS (9)
  1. ARAVA [Suspect]
     Indication: RHEUMATOID ARTHRITIS
     Route: 048
     Dates: start: 20070628, end: 20080218
  2. INFLIXIMAB [Suspect]
     Indication: RHEUMATOID ARTHRITIS
     Dates: start: 20070401
  3. PREDNISOLONE [Concomitant]
     Route: 048
     Dates: start: 20060319, end: 20080218
  4. GASTER [Concomitant]
     Route: 048
     Dates: start: 20051221, end: 20080218
  5. ASPIRIN [Concomitant]
     Route: 048
     Dates: start: 20021227, end: 20080218
  6. ISONIAZID [Concomitant]
     Route: 048
     Dates: start: 20051020, end: 20080218
  7. PYDOXAL [Concomitant]
     Route: 048
     Dates: start: 20051020, end: 20080218
  8. GASMOTIN [Concomitant]
     Dosage: DOSE: 5 MG, 3 TABLETS
     Route: 048
     Dates: start: 20070531, end: 20080218
  9. CLARITHROMYCIN [Concomitant]
     Route: 048
     Dates: start: 20070710, end: 20080218

REACTIONS (2)
  - CARDIAC FAILURE [None]
  - CYTOMEGALOVIRUS GASTROENTERITIS [None]
